FAERS Safety Report 7202866-9 (Version None)
Quarter: 2010Q4

REPORT INFORMATION
  Report Type: 
  Country: None (occurrence: None)
  Receive Date: 20101130
  Receipt Date: 20101115
  Transmission Date: 20110411
  Serious: Yes (Hospitalization, Disabling, Congenital Anomaly)
  Sender: FDA-Public Use
  Company Number: 2010026917

PATIENT

DRUGS (6)
  1. HAEMATE P (ANTIHEMOPHILIC FACTOR) [Suspect]
     Dates: start: 20100128, end: 20100927
  2. FIBROGAMMIN P (FACTOR XIII (FIBRIN STABILISING FACTOR)) [Suspect]
     Dates: start: 20100222, end: 20100222
  3. FIBROGAMMIN P (FACTOR XIII (FIBRIN STABILISING FACTOR)) [Suspect]
     Dates: start: 20100707, end: 20100707
  4. PRIVIGEN [Suspect]
     Dates: start: 20100201, end: 20100419
  5. FOLIC ACID [Concomitant]
  6. IRON [Concomitant]

REACTIONS (4)
  - CONGENITAL GENITAL MALFORMATION [None]
  - CONGENITAL NOSE MALFORMATION [None]
  - MATERNAL DRUGS AFFECTING FOETUS [None]
  - SYNDACTYLY [None]
